FAERS Safety Report 7630040-0 (Version None)
Quarter: 2011Q3

REPORT INFORMATION
  Report Type: 
  Country: None (occurrence: None)
  Receive Date: 20110722
  Receipt Date: 20110720
  Transmission Date: 20111222
  Serious: Yes (Other)
  Sender: FDA-Public Use
  Company Number: US-ALLERGAN-1109822US

PATIENT
  Age: 60 Year
  Sex: Female

DRUGS (2)
  1. BOTULINUM TOXIN TYPE A [Suspect]
     Indication: TORTICOLLIS
     Dosage: 300 UNITS, SINGLE
     Route: 030
     Dates: start: 20110705, end: 20110705
  2. BOTULINUM TOXIN TYPE A [Suspect]
     Indication: DYSTONIA
     Dosage: 100 UNITS, SINGLE
     Route: 030
     Dates: start: 20110701, end: 20110701

REACTIONS (4)
  - THERAPEUTIC RESPONSE DECREASED [None]
  - LOSS OF CONSCIOUSNESS [None]
  - DYSPHAGIA [None]
  - CONVULSION [None]
